FAERS Safety Report 12116638 (Version 1)
Quarter: 2016Q1

REPORT INFORMATION
  Report Type: Spontaneous
  Country: GB (occurrence: GB)
  Receive Date: 20160225
  Receipt Date: 20160225
  Transmission Date: 20160526
  Serious: Yes (Hospitalization, Other)
  Sender: FDA-Public Use
  Company Number: GB-TEVA-636052ACC

PATIENT
  Age: 95 Year

DRUGS (14)
  1. AMITRIPTYLINE [Concomitant]
     Active Substance: AMITRIPTYLINE
  2. IPRATROPIUM BROMIDE. [Concomitant]
     Active Substance: IPRATROPIUM BROMIDE
     Route: 045
  3. LEVOTHYROXINE. [Concomitant]
     Active Substance: LEVOTHYROXINE
  4. OMEPRAZOLE. [Concomitant]
     Active Substance: OMEPRAZOLE
  5. E45 [Concomitant]
     Active Substance: LANOLIN\LIGHT MINERAL OIL\PARAFFIN
  6. AMIODARONE [Suspect]
     Active Substance: AMIODARONE
     Route: 065
  7. CODEINE [Concomitant]
     Active Substance: CODEINE
  8. IBUPROFEN. [Concomitant]
     Active Substance: IBUPROFEN
  9. BISOPROLOL [Concomitant]
     Active Substance: BISOPROLOL
  10. WARFARIN [Concomitant]
     Active Substance: WARFARIN
     Dosage: (ACTAVIS UK LTD)
  11. ADCAL-D3 [Concomitant]
     Active Substance: CALCIUM CARBONATE\CHOLECALCIFEROL
     Dosage: TUTTI FRUTTI (PROSTRAKAN LTD)
  12. BUPRENORPHINE. [Concomitant]
     Active Substance: BUPRENORPHINE
     Dosage: PATCHES
  13. FUROSEMIDE. [Concomitant]
     Active Substance: FUROSEMIDE
  14. PARACETAMOL [Concomitant]
     Active Substance: ACETAMINOPHEN

REACTIONS (4)
  - Hypothyroidism [Unknown]
  - International normalised ratio increased [Unknown]
  - Torsade de pointes [Recovered/Resolved]
  - Electrocardiogram QT prolonged [Unknown]
